FAERS Safety Report 17637966 (Version 9)
Quarter: 2020Q3

REPORT INFORMATION
  Report Type: Spontaneous
  Country: US (occurrence: US)
  Receive Date: 20200407
  Receipt Date: 20200806
  Transmission Date: 20201102
  Serious: Yes (Other)
  Sender: FDA-Public Use
  Company Number: US-PFIZER INC-2020046370

PATIENT
  Age: 67 Year
  Sex: Female
  Weight: 86.18 kg

DRUGS (1)
  1. PREMARIN [Suspect]
     Active Substance: ESTROGENS, CONJUGATED
     Dosage: UNK

REACTIONS (4)
  - Intentional product misuse [Unknown]
  - Neoplasm malignant [Unknown]
  - Cataract [Unknown]
  - Hypoacusis [Unknown]
